FAERS Safety Report 4396474-5 (Version None)
Quarter: 2004Q3

REPORT INFORMATION
  Report Type: 
  Country: None (occurrence: None)
  Receive Date: 20040709
  Receipt Date: 20040628
  Transmission Date: 20050211
  Serious: Yes (Hospitalization)
  Sender: FDA-Public Use
  Company Number: JP-JNJFOC-20040104990

PATIENT
  Age: 16 Year
  Sex: Female

DRUGS (5)
  1. RISPERDAL [Suspect]
     Indication: EATING DISORDER
     Dosage: 2 MG, IN 1 DAY, ORAL
     Route: 048
     Dates: start: 20001201, end: 20031201
  2. HALOPERIDOL [Concomitant]
  3. CHLORPROMAZINE HCL [Concomitant]
  4. BIPERIDEN HYDROCHLORIDE [Concomitant]
  5. MOSAPRIDE CITRATE [Concomitant]

REACTIONS (8)
  - DYSPHAGIA [None]
  - GASTRIC DISORDER [None]
  - GASTRIC MUCOSAL HYPERTROPHY [None]
  - GASTROOESOPHAGEAL REFLUX DISEASE [None]
  - MUSCLE HYPERTROPHY [None]
  - OESOPHAGEAL DISORDER [None]
  - OESOPHAGEAL STENOSIS [None]
  - VOMITING [None]
